FAERS Safety Report 22180749 (Version 1)
Quarter: 2023Q2

REPORT INFORMATION
  Report Type: Spontaneous
  Country: US (occurrence: None)
  Receive Date: 20230406
  Receipt Date: 20230406
  Transmission Date: 20230722
  Serious: Yes (Other)
  Sender: FDA-Public Use
  Company Number: US-Hikma Pharmaceuticals USA Inc.-US-H14001-23-00966

PATIENT
  Age: 51 Year
  Sex: Male

DRUGS (1)
  1. AMIODARONE [Suspect]
     Active Substance: AMIODARONE
     Indication: Ventricular dysfunction
     Dosage: UNKNOWN
     Route: 065

REACTIONS (5)
  - Ventricular pre-excitation [Recovered/Resolved]
  - Nodal arrhythmia [Unknown]
  - Accessory cardiac pathway [Recovered/Resolved]
  - Sinus bradycardia [Unknown]
  - Atrioventricular block first degree [Unknown]
